FAERS Safety Report 7556601-5 (Version None)
Quarter: 2011Q2

REPORT INFORMATION
  Report Type: 
  Country: None (occurrence: None)
  Receive Date: 20110615
  Receipt Date: 20110615
  Transmission Date: 20111010
  Serious: Yes (Other)
  Sender: FDA-Public Use
  Company Number: None

PATIENT
  Age: 65 Year
  Sex: Male
  Weight: 68.0396 kg

DRUGS (2)
  1. LANTUS [Suspect]
     Indication: DIABETES MELLITUS
     Dosage: 5 UNITS TWICE A DAY SQ
     Route: 058
     Dates: start: 20101201, end: 20110210
  2. LANTUS [Suspect]
     Indication: DIABETES MELLITUS
     Dosage: 5 UNITS TWICE A DAY SQ
     Route: 058
     Dates: start: 20110525, end: 20110608

REACTIONS (3)
  - DRUG INEFFECTIVE [None]
  - PRODUCT FORMULATION ISSUE [None]
  - BLOOD GLUCOSE INCREASED [None]
